FAERS Safety Report 13844542 (Version 1)
Quarter: 2017Q3

REPORT INFORMATION
  Report Type: Spontaneous
  Country: US (occurrence: US)
  Receive Date: 20170808
  Receipt Date: 20170808
  Transmission Date: 20171127
  Serious: No
  Sender: FDA-Public Use
  Company Number: US-BAYER-2017-151092

PATIENT
  Age: 54 Year
  Sex: Female
  Weight: 91 kg

DRUGS (4)
  1. HYDROCHLOROTHIAZIDE. [Concomitant]
     Active Substance: HYDROCHLOROTHIAZIDE
     Dosage: UNK
  2. AMLODIPINE [Concomitant]
     Active Substance: AMLODIPINE BESYLATE
     Dosage: UNK
  3. MIRALAX [Suspect]
     Active Substance: POLYETHYLENE GLYCOL 3350
     Dosage: UNK
     Route: 048
     Dates: start: 20170807, end: 20170807
  4. TOPAMAX [Concomitant]
     Active Substance: TOPIRAMATE
     Dosage: 238 G, UNK

REACTIONS (3)
  - Off label use [Unknown]
  - Expired product administered [None]
  - Inappropriate prescribing [Unknown]

NARRATIVE: CASE EVENT DATE: 20170807
